FAERS Safety Report 18942568 (Version 1)
Quarter: 2021Q1

REPORT INFORMATION
  Report Type: Spontaneous
  Country: US (occurrence: US)
  Receive Date: 20210225
  Receipt Date: 20210225
  Transmission Date: 20210420
  Serious: No
  Sender: FDA-Public Use
  Company Number: US-PERRIGO-20US006516

PATIENT
  Sex: Male

DRUGS (2)
  1. CABAZITAXEL [Concomitant]
     Active Substance: CABAZITAXEL
     Indication: NEOPLASM MALIGNANT
     Dosage: UNK, UNK
     Route: 065
     Dates: start: 202004
  2. NAPROXEN SODIUM. [Suspect]
     Active Substance: NAPROXEN SODIUM
     Indication: BONE PAIN
     Dosage: 220 MG, SINGLE
     Route: 048
     Dates: start: 20200428, end: 20200428

REACTIONS (1)
  - Condition aggravated [Unknown]

NARRATIVE: CASE EVENT DATE: 202004
